FAERS Safety Report 18974139 (Version 3)
Quarter: 2021Q2

REPORT INFORMATION
  Report Type: Spontaneous
  Country: KR (occurrence: KR)
  Receive Date: 20210305
  Receipt Date: 20210524
  Transmission Date: 20210717
  Serious: Yes (Other)
  Sender: FDA-Public Use
  Company Number: KR-GUERBET-KR-20210004

PATIENT
  Age: 53 Year
  Sex: Female

DRUGS (8)
  1. CYANOACRYLATE [Concomitant]
     Active Substance: OCRYLATE
     Dosage: TWO INJECTIONS OF 1 ML AND 0.5 ML
     Route: 065
  2. CEFTRIAXONE. [Concomitant]
     Active Substance: CEFTRIAXONE
     Indication: ANTIBIOTIC PROPHYLAXIS
     Route: 065
  3. LIPIODOL [Suspect]
     Active Substance: ETHIODIZED OIL
     Dosage: ONE INJECTION OF 0.5 ML
     Route: 065
  4. LIPIODOL [Suspect]
     Active Substance: ETHIODIZED OIL
     Indication: THERAPEUTIC EMBOLISATION
     Dosage: FOUR INJECTIONS OF A CYANOACRYLATE (0.5 ML) AND LIPIODOL (0.5 ML) MIXTURE WERE DONE [1 ML, 1 ML, 0.5
     Route: 065
  5. LIPIODOL [Suspect]
     Active Substance: ETHIODIZED OIL
     Dosage: TWO INJECTIONS OF 1 ML AND 0.5 ML
     Route: 065
  6. CYANOACRYLATE [Concomitant]
     Active Substance: OCRYLATE
     Indication: THERAPEUTIC EMBOLISATION
     Dosage: FOUR INJECTIONS OF A CYANOACRYLATE (0.5 ML) AND LIPIODOL (0.5 ML) MIXTURE WERE DONE [1 ML, 1 ML, 0.5
     Route: 065
  7. CYANOACRYLATE [Concomitant]
     Active Substance: OCRYLATE
     Dosage: ONE INJECTION OF 0.5 ML
     Route: 065
  8. TERLIPRESSIN [Concomitant]
     Active Substance: TERLIPRESSIN
     Indication: PRODUCT USED FOR UNKNOWN INDICATION
     Route: 042

REACTIONS (2)
  - Product use in unapproved indication [Recovered/Resolved]
  - Candida infection [Recovered/Resolved]
